FAERS Safety Report 8934507 (Version 1)
Quarter: 2012Q4

REPORT INFORMATION
  Report Type: 
  Country: US (occurrence: US)
  Receive Date: 20121129
  Receipt Date: 20121129
  Transmission Date: 20130627
  Serious: No
  Sender: FDA-Public Use
  Company Number: US-GLAXOSMITHKLINE-A0960780A

PATIENT
  Age: 83 Year
  Sex: Male

DRUGS (10)
  1. FLOVENT [Suspect]
     Indication: CHRONIC OBSTRUCTIVE PULMONARY DISEASE
     Dosage: 1PUFF Twice per day
     Route: 055
     Dates: start: 201108
  2. NASONEX [Concomitant]
  3. ALBUTEROL [Concomitant]
  4. LOSARTAN WITH HYDROCHLOROTHIAZIDE [Concomitant]
  5. HYDROCODONE [Concomitant]
  6. SIMVASTATIN [Concomitant]
  7. FERROUS SULFATE [Concomitant]
  8. BENADRYL [Concomitant]
  9. MOBIC [Concomitant]
  10. VITAMIN C [Concomitant]

REACTIONS (1)
  - Drug ineffective [Unknown]
